FAERS Safety Report 9312385 (Version 1)
Quarter: 2013Q2

REPORT INFORMATION
  Report Type: Spontaneous
  Country: IT (occurrence: IT)
  Receive Date: 20130528
  Receipt Date: 20130528
  Transmission Date: 20140414
  Serious: Yes (Death)
  Sender: FDA-Public Use
  Company Number: IT-ASTRAZENECA-2013SE36570

PATIENT
  Sex: Male
  Weight: 75 kg

DRUGS (2)
  1. PROPOFOL [Suspect]
     Route: 042
  2. TRAMADOL [Suspect]

REACTIONS (6)
  - Intentional drug misuse [Fatal]
  - Toxicity to various agents [Fatal]
  - Respiratory failure [Fatal]
  - Cardiac arrest [Fatal]
  - Atrial fibrillation [Fatal]
  - Acidosis [Fatal]
